FAERS Safety Report 15630249 (Version 1)
Quarter: 2018Q4

REPORT INFORMATION
  Report Type: Spontaneous
  Country: US (occurrence: US)
  Receive Date: 20181117
  Receipt Date: 20181117
  Transmission Date: 20190205
  Serious: No
  Sender: FDA-Public Use
  Company Number: None

PATIENT
  Age: 53 Year
  Sex: Female
  Weight: 50.4 kg

DRUGS (6)
  1. AIMOVIG [Suspect]
     Active Substance: ERENUMAB-AOOE
     Indication: MIGRAINE
     Dosage: ?          QUANTITY:1 INJECTION(S);OTHER FREQUENCY:ONCE A MONTH;?
     Route: 058
     Dates: start: 20181013, end: 20181013
  2. SEEEQUIL [Concomitant]
  3. PROZAC [Concomitant]
     Active Substance: FLUOXETINE HYDROCHLORIDE
  4. HYDROCODONE [Concomitant]
     Active Substance: HYDROCODONE
  5. ZOFRAN [Concomitant]
     Active Substance: ONDANSETRON HYDROCHLORIDE
  6. ZOMIG [Concomitant]
     Active Substance: ZOLMITRIPTAN

REACTIONS (8)
  - Vomiting [None]
  - Hypophagia [None]
  - Migraine [None]
  - Dehydration [None]
  - Insomnia [None]
  - Anxiety [None]
  - Depression [None]
  - Vision blurred [None]

NARRATIVE: CASE EVENT DATE: 20181014
